FAERS Safety Report 7186743-8 (Version None)
Quarter: 2010Q4

REPORT INFORMATION
  Report Type: 
  Country: None (occurrence: None)
  Receive Date: 20101222
  Receipt Date: 20101014
  Transmission Date: 20110411
  Serious: Yes (Death, Other)
  Sender: FDA-Public Use
  Company Number: DK-BAXTER-2010BH025868

PATIENT
  Age: 50 Year
  Sex: Male

DRUGS (3)
  1. METRONIDAZOLE [Suspect]
     Indication: BACTERIAL INFECTION
     Route: 065
     Dates: start: 20090829, end: 20090930
  2. CIPROFLOXACIN [Concomitant]
     Indication: BACTERIAL INFECTION
     Route: 065
     Dates: start: 20090829, end: 20090930
  3. MEROPENEM [Concomitant]
     Indication: BACTERIAL INFECTION
     Route: 065
     Dates: start: 20090829, end: 20090930

REACTIONS (3)
  - CEREBRAL DISORDER [None]
  - DEATH [None]
  - POLYNEUROPATHY [None]
